FAERS Safety Report 7893375-2 (Version None)
Quarter: 2011Q4

REPORT INFORMATION
  Report Type: 
  Country: None (occurrence: None)
  Receive Date: 20111104
  Receipt Date: 20111027
  Transmission Date: 20120403
  Serious: Yes (Hospitalization)
  Sender: FDA-Public Use
  Company Number: DZ-ROCHE-1005589

PATIENT
  Sex: Male

DRUGS (5)
  1. VINCRISTINE [Concomitant]
     Indication: NON-HODGKIN'S LYMPHOMA
     Dates: start: 20110921
  2. POLARAMINE [Concomitant]
     Indication: PREMEDICATION
  3. CYCLOPHOSPHAMIDE [Concomitant]
     Indication: NON-HODGKIN'S LYMPHOMA
     Dates: start: 20110921
  4. DOXORUBICIN HCL [Concomitant]
     Indication: NON-HODGKIN'S LYMPHOMA
     Dates: start: 20110921
  5. MABTHERA [Suspect]
     Indication: NON-HODGKIN'S LYMPHOMA
     Dosage: 7 DROPS PER MINUTE
     Route: 042
     Dates: start: 20110921, end: 20110921

REACTIONS (6)
  - HYPERSENSITIVITY [None]
  - HALLUCINATION [None]
  - HYPOTHERMIA [None]
  - DRUG HYPERSENSITIVITY [None]
  - ERYTHROSIS [None]
  - CHEST DISCOMFORT [None]
